FAERS Safety Report 18894191 (Version 1)
Quarter: 2021Q1

REPORT INFORMATION
  Report Type: Spontaneous
  Country: US (occurrence: US)
  Receive Date: 20210215
  Receipt Date: 20210215
  Transmission Date: 20210420
  Serious: Yes (Other)
  Sender: FDA-Public Use
  Company Number: NVSC2021US027522

PATIENT
  Sex: Female

DRUGS (2)
  1. TAGRISSO [Concomitant]
     Active Substance: OSIMERTINIB
     Indication: PRODUCT USED FOR UNKNOWN INDICATION
     Dosage: UNK
     Route: 065
  2. TABRECTA [Suspect]
     Active Substance: CAPMATINIB
     Indication: NEOPLASM MALIGNANT
     Dosage: 400 MG, QD (STARTED ON AUG 12)
     Route: 065

REACTIONS (3)
  - Incorrect dose administered [Unknown]
  - Pulmonary oedema [Unknown]
  - Feeling abnormal [Unknown]
